FAERS Safety Report 26163741 (Version 1)
Quarter: 2025Q4

REPORT INFORMATION
  Report Type: Spontaneous
  Country: GB (occurrence: GB)
  Receive Date: 20251216
  Receipt Date: 20251216
  Transmission Date: 20260117
  Serious: Yes (Hospitalization)
  Sender: VERTEX
  Company Number: GB-VERTEX PHARMACEUTICALS-2025-021134

PATIENT
  Sex: Male

DRUGS (1)
  1. ELEXACAFTOR\IVACAFTOR\TEZACAFTOR [Suspect]
     Active Substance: ELEXACAFTOR\IVACAFTOR\TEZACAFTOR
     Indication: Cystic fibrosis
     Dosage: 75 MG IVACAFTOR/50 MG TEZACAFTOR/100 MG ELEXACAFTOR, TWICE A DAY
     Route: 061
     Dates: start: 20240101

REACTIONS (2)
  - Lower respiratory tract infection [Unknown]
  - Pneumothorax [Unknown]

NARRATIVE: CASE EVENT DATE: 20250101
